FAERS Safety Report 20687501 (Version 1)
Quarter: 2022Q2

REPORT INFORMATION
  Report Type: Report from Study
  Country: US (occurrence: US)
  Receive Date: 20220408
  Receipt Date: 20220408
  Transmission Date: 20220721
  Serious: No
  Sender: FDA-Public Use
  Company Number: US-ACADIA PHARMACEUTICALS INC.-ACA-2022-PIM-000907

PATIENT
  Age: 77 Year
  Sex: Female

DRUGS (12)
  1. NUPLAZID [Suspect]
     Active Substance: PIMAVANSERIN TARTRATE
     Indication: Hallucination
     Dosage: 10 MILLIGRAM, QD
     Route: 048
     Dates: start: 20220305, end: 20220312
  2. NUPLAZID [Suspect]
     Active Substance: PIMAVANSERIN TARTRATE
     Indication: Parkinson^s disease psychosis
  3. NUPLAZID [Suspect]
     Active Substance: PIMAVANSERIN TARTRATE
     Indication: Delusion
  4. ENALAPRIL [Concomitant]
     Active Substance: ENALAPRIL
     Dosage: 20 MILLIGRAM
  5. ROPINIROLE [Concomitant]
     Active Substance: ROPINIROLE
     Dosage: 0.5 MILLIGRAM
  6. CARBIDOPA\LEVODOPA [Concomitant]
     Active Substance: CARBIDOPA\LEVODOPA
     Dosage: 25-100 MILLIGRAM
  7. CHOLECALCIFEROL [Concomitant]
     Active Substance: CHOLECALCIFEROL
  8. MAGNESIUM [Concomitant]
     Active Substance: MAGNESIUM
     Dosage: 250 MILLIGRAM
  9. VITAMINS [Concomitant]
     Active Substance: VITAMINS
  10. ASPIRIN [Concomitant]
     Active Substance: ASPIRIN
  11. VITAMIN B12 [Concomitant]
     Active Substance: CYANOCOBALAMIN
  12. DOCUSATE [Concomitant]
     Active Substance: DOCUSATE

REACTIONS (3)
  - Thinking abnormal [Unknown]
  - Underdose [Recovered/Resolved]
  - Hallucination [Unknown]

NARRATIVE: CASE EVENT DATE: 20220305
